FAERS Safety Report 16508660 (Version 1)
Quarter: 2019Q3

REPORT INFORMATION
  Report Type: Report from Study
  Country: None (occurrence: BR)
  Receive Date: 20190702
  Receipt Date: 20190702
  Transmission Date: 20191004
  Serious: Yes (Other)
  Sender: FDA-Public Use
  Company Number: BR-ABBVIE-19K-020-2837826-00

PATIENT
  Sex: Male
  Weight: 70 kg

DRUGS (2)
  1. COLLAGEN [Concomitant]
     Active Substance: COLLAGEN
     Indication: OSTEOARTHRITIS
     Dosage: MAGISTRAL FORMULA
  2. HUMIRA [Suspect]
     Active Substance: ADALIMUMAB
     Indication: ANKYLOSING SPONDYLITIS
     Route: 058
     Dates: start: 20160919, end: 201905

REACTIONS (5)
  - Hypertension [Recovering/Resolving]
  - Insomnia [Recovering/Resolving]
  - Tooth extraction [Recovering/Resolving]
  - Anxiety [Unknown]
  - Osteoarthritis [Unknown]

NARRATIVE: CASE EVENT DATE: 2019
